FAERS Safety Report 18180592 (Version 1)
Quarter: 2020Q3

REPORT INFORMATION
  Report Type: Spontaneous
  Country: IT (occurrence: IT)
  Receive Date: 20200821
  Receipt Date: 20200821
  Transmission Date: 20201103
  Serious: Yes (Other)
  Sender: FDA-Public Use
  Company Number: IT-ACTELION-A-CH2020-208552

PATIENT
  Sex: Male

DRUGS (2)
  1. ZAVESCA [Suspect]
     Active Substance: MIGLUSTAT
     Indication: GALACTOSIALIDOSIS
     Dosage: 70 MG, BID
     Route: 048
  2. ZAVESCA [Suspect]
     Active Substance: MIGLUSTAT
     Dosage: 300 MG, QD
     Route: 048

REACTIONS (12)
  - Abdominal pain [Not Recovered/Not Resolved]
  - Diarrhoea [Not Recovered/Not Resolved]
  - Attention deficit hyperactivity disorder [Unknown]
  - Aggression [Unknown]
  - Epilepsy [Unknown]
  - Intellectual disability [Unknown]
  - Dysarthria [Unknown]
  - Decreased appetite [Unknown]
  - Platyspondylia [Unknown]
  - Clumsiness [Unknown]
  - Hyperkinesia [Unknown]
  - Psychomotor hyperactivity [Unknown]
